FAERS Safety Report 22215250 (Version 1)
Quarter: 2023Q2

REPORT INFORMATION
  Report Type: Spontaneous
  Country: US (occurrence: US)
  Receive Date: 20230415
  Receipt Date: 20230415
  Transmission Date: 20230722
  Serious: No
  Sender: FDA-Public Use
  Company Number: US-JNJFOC-20191235088

PATIENT
  Age: 78 Year
  Sex: Female

DRUGS (1)
  1. DIMETHICONE\LOPERAMIDE [Suspect]
     Active Substance: DIMETHICONE\LOPERAMIDE
     Indication: Diarrhoea
     Dosage: 1 CAPLET 3X DAILY
     Route: 048

REACTIONS (2)
  - Product prescribing error [Unknown]
  - Off label use [Unknown]
